FAERS Safety Report 22608379 (Version 1)
Quarter: 2023Q2

REPORT INFORMATION
  Report Type: Spontaneous
  Country: US (occurrence: US)
  Receive Date: 20230616
  Receipt Date: 20230616
  Transmission Date: 20230722
  Serious: Yes (Other)
  Sender: FDA-Public Use
  Company Number: US-ABBVIE-5291461

PATIENT
  Sex: Female

DRUGS (1)
  1. LUPRON [Suspect]
     Active Substance: LEUPROLIDE ACETATE
     Indication: Uterine leiomyoma
     Route: 058
     Dates: start: 202301, end: 202306

REACTIONS (40)
  - Hysterectomy [Unknown]
  - Pain [Unknown]
  - Nerve compression [Unknown]
  - Muscular weakness [Unknown]
  - Trigger finger [Unknown]
  - Ear infection [Unknown]
  - Pulpless tooth [Unknown]
  - Ear discomfort [Unknown]
  - Oesophageal food impaction [Unknown]
  - Nail disorder [Unknown]
  - Mental disorder [Unknown]
  - Dysuria [Unknown]
  - Infection [Unknown]
  - Breath odour [Unknown]
  - Finger deformity [Unknown]
  - Gait disturbance [Unknown]
  - Hypoaesthesia [Unknown]
  - Short-bowel syndrome [Unknown]
  - Vaginal infection [Unknown]
  - Limb injury [Unknown]
  - Uterine disorder [Unknown]
  - Fungal infection [Unknown]
  - Nerve injury [Unknown]
  - Gastrointestinal disorder [Unknown]
  - Dry skin [Unknown]
  - Loss of personal independence in daily activities [Unknown]
  - Vaginal prolapse [Unknown]
  - Carpal tunnel syndrome [Unknown]
  - Penis injury [Unknown]
  - Alopecia [Unknown]
  - Liver injury [Unknown]
  - Arthropathy [Not Recovered/Not Resolved]
  - General physical health deterioration [Unknown]
  - Dyschezia [Unknown]
  - Neoplasm recurrence [Unknown]
  - Necrosis [Unknown]
  - Back disorder [Not Recovered/Not Resolved]
  - Arthropathy [Not Recovered/Not Resolved]
  - Ear pruritus [Unknown]
  - Weight bearing difficulty [Unknown]

NARRATIVE: CASE EVENT DATE: 20230101
